FAERS Safety Report 17287697 (Version 1)
Quarter: 2020Q1

REPORT INFORMATION
  Report Type: Spontaneous
  Country: SE (occurrence: SE)
  Receive Date: 20200120
  Receipt Date: 20200120
  Transmission Date: 20200409
  Serious: Yes (Hospitalization)
  Sender: FDA-Public Use
  Company Number: SE-ALLERGAN-2002060US

PATIENT

DRUGS (3)
  1. PROPAVAN [Suspect]
     Active Substance: PROPIOMAZINE
     Indication: PRODUCT USED FOR UNKNOWN INDICATION
     Dosage: REPORTED AS 13 PROPAVAN: UNCLEAR DOSE QUANTITY
     Route: 048
     Dates: start: 20181217, end: 20181217
  2. ESCITALOPRAM OXALATE - BP [Suspect]
     Active Substance: ESCITALOPRAM OXALATE
     Indication: PRODUCT USED FOR UNKNOWN INDICATION
     Dosage: OVERDOSE: DOSE UNKNOWN, UNCLEAR DOSE QUANTITY
     Route: 048
     Dates: start: 20181217, end: 20181217
  3. ALIMEMAZINE [Suspect]
     Active Substance: TRIMEPRAZINE
     Indication: PRODUCT USED FOR UNKNOWN INDICATION
     Dosage: UNCLEAR DOSE QUANTITY
     Route: 048
     Dates: start: 20181217, end: 20181217

REACTIONS (5)
  - Product administered to patient of inappropriate age [Unknown]
  - Unresponsive to stimuli [Unknown]
  - Intentional overdose [Unknown]
  - Intentional self-injury [Unknown]
  - Somnolence [Unknown]

NARRATIVE: CASE EVENT DATE: 20181217
